FAERS Safety Report 12518879 (Version 1)
Quarter: 2016Q2

REPORT INFORMATION
  Report Type: Other
  Country: DE (occurrence: DE)
  Receive Date: 20160630
  Receipt Date: 20160630
  Transmission Date: 20160815
  Serious: No
  Sender: FDA-Public Use
  Company Number: DE-LUPIN PHARMACEUTICALS INC.-E2B_00003834

PATIENT
  Age: 51 Year
  Sex: Male
  Weight: 80 kg

DRUGS (4)
  1. ASPIRIN. [Concomitant]
     Active Substance: ASPIRIN
     Indication: CORONARY ARTERY DISEASE
     Route: 048
     Dates: start: 2013
  2. EZETROL [Suspect]
     Active Substance: EZETIMIBE
     Indication: LIPIDS INCREASED
     Route: 048
     Dates: start: 2014
  3. BEZAFIBRATE [Suspect]
     Active Substance: BEZAFIBRATE
     Indication: LIPIDS INCREASED
     Route: 048
     Dates: start: 2014
  4. SIMVASTATIN. [Suspect]
     Active Substance: SIMVASTATIN
     Indication: LIPIDS INCREASED
     Route: 048
     Dates: start: 2014

REACTIONS (1)
  - Myalgia [Recovering/Resolving]

NARRATIVE: CASE EVENT DATE: 20140601
